FAERS Safety Report 9285168 (Version 5)
Quarter: 2013Q3

REPORT INFORMATION
  Report Type: Report from Study
  Country: FR (occurrence: FR)
  Receive Date: 20130513
  Receipt Date: 20130826
  Transmission Date: 20140515
  Serious: Yes (Hospitalization)
  Sender: FDA-Public Use
  Company Number: FR-TEVA-404529USA

PATIENT
  Age: 76 Year
  Sex: Male

DRUGS (12)
  1. LEVACT [Suspect]
     Indication: MANTLE CELL LYMPHOMA
     Route: 041
     Dates: start: 20121108
  2. LEVACT [Suspect]
     Route: 041
     Dates: start: 20121206, end: 20121207
  3. VELCADE [Suspect]
     Indication: MANTLE CELL LYMPHOMA
     Route: 058
     Dates: start: 20121108
  4. VELCADE [Suspect]
     Route: 058
     Dates: start: 20121206
  5. RITUXIMAB [Suspect]
     Indication: MANTLE CELL LYMPHOMA
     Route: 041
     Dates: start: 20121108
  6. RITUXIMAB [Suspect]
     Route: 041
     Dates: start: 20121206
  7. DEXAMETHASONE [Suspect]
     Indication: MANTLE CELL LYMPHOMA
     Route: 041
     Dates: start: 20121109
  8. DEXAMETHASONE [Suspect]
     Route: 041
     Dates: start: 20121207
  9. VALACICLOVIR [Concomitant]
     Dosage: 500 MILLIGRAM DAILY;
  10. BACTRIM [Concomitant]
  11. LEDERFOLINE [Concomitant]
  12. PRIMPERAN [Concomitant]

REACTIONS (3)
  - Pyrexia [Recovered/Resolved]
  - Rash pruritic [Recovered/Resolved]
  - Rash maculo-papular [Recovered/Resolved]
